FAERS Safety Report 10191394 (Version 1)
Quarter: 2014Q2

REPORT INFORMATION
  Report Type: Spontaneous
  Country: JP (occurrence: JP)
  Receive Date: 20140523
  Receipt Date: 20140523
  Transmission Date: 20141212
  Serious: Yes (Other)
  Sender: FDA-Public Use
  Company Number: JP-MYLANLABS-2014S1011454

PATIENT
  Age: 8 Year
  Sex: Male

DRUGS (3)
  1. PHENOBARBITAL [Suspect]
     Indication: CONVULSION
     Route: 048
  2. SODIUM VALPROATE [Suspect]
     Indication: CONVULSION
     Route: 048
  3. ZONISAMIDE [Suspect]
     Indication: PRODUCT USED FOR UNKNOWN INDICATION
     Route: 048

REACTIONS (1)
  - Drug reaction with eosinophilia and systemic symptoms [Unknown]
